FAERS Safety Report 11871476 (Version 9)
Quarter: 2016Q2

REPORT INFORMATION
  Report Type: Report from Study
  Country: JP (occurrence: JP)
  Receive Date: 20151228
  Receipt Date: 20160520
  Transmission Date: 20160815
  Serious: Yes (Hospitalization, Other)
  Sender: FDA-Public Use
  Company Number: JP-PFIZER INC-2015471463

PATIENT
  Age: 65 Year
  Sex: Female
  Weight: 61 kg

DRUGS (5)
  1. SPIRIVA [Concomitant]
     Active Substance: TIOTROPIUM BROMIDE MONOHYDRATE
     Indication: LYMPHANGIOLEIOMYOMATOSIS
     Dosage: 5 UG, 1X/DAY (1 D)
     Route: 055
     Dates: start: 20150622
  2. SIROLIMUS. [Suspect]
     Active Substance: SIROLIMUS
     Indication: LYMPHANGIOLEIOMYOMATOSIS
     Dosage: 1 MG, 1X/DAY (1 D)
     Route: 048
     Dates: start: 20150205, end: 20151006
  3. ONBREZ [Concomitant]
     Active Substance: INDACATEROL
     Dosage: 150 UG, 1X/DAY (1 D)
     Route: 065
  4. VITANEURIN /02072701/ [Concomitant]
     Dosage: UNK
     Route: 048
     Dates: start: 20150205, end: 20150810
  5. UNIPHYLLA [Concomitant]
     Active Substance: THEOPHYLLINE ANHYDROUS
     Dosage: 200 MG, 1X/DAY (1 D)
     Route: 048
     Dates: start: 20151207

REACTIONS (4)
  - Stomatitis [Recovering/Resolving]
  - Anti-neutrophil cytoplasmic antibody positive vasculitis [Recovering/Resolving]
  - Pleural effusion [Recovering/Resolving]
  - Pneumonia [Recovering/Resolving]

NARRATIVE: CASE EVENT DATE: 20150305
